FAERS Safety Report 24408069 (Version 1)
Quarter: 2024Q4

REPORT INFORMATION
  Report Type: Spontaneous
  Country: US (occurrence: None)
  Receive Date: 20241007
  Receipt Date: 20241007
  Transmission Date: 20250114
  Serious: Yes (Life-Threatening)
  Sender: Public
  Company Number: None

PATIENT
  Age: 56 Year
  Sex: Female
  Weight: 76.5 kg

DRUGS (1)
  1. RYBELSUS [Suspect]
     Active Substance: SEMAGLUTIDE
     Indication: Diabetes mellitus
     Dates: start: 20240915, end: 20240927

REACTIONS (9)
  - Asthenia [None]
  - Dizziness [None]
  - Nausea [None]
  - Gait inability [None]
  - Weight decreased [None]
  - Hypophagia [None]
  - Dehydration [None]
  - Blood glucose decreased [None]
  - Impaired work ability [None]

NARRATIVE: CASE EVENT DATE: 20240920
